FAERS Safety Report 10089201 (Version 2)
Quarter: 2014Q2

REPORT INFORMATION
  Report Type: Spontaneous
  Country: IE (occurrence: IE)
  Receive Date: 20140421
  Receipt Date: 20140421
  Transmission Date: 20141212
  Serious: Yes (Hospitalization)
  Sender: FDA-Public Use
  Company Number: IE-JNJFOC-20140203044

PATIENT
  Sex: 0
  Weight: 63.5 kg

DRUGS (2)
  1. NICORETTE INVISI 15MG PATCH [Suspect]
     Route: 065
  2. NICORETTE INVISI 15MG PATCH [Suspect]
     Indication: PRODUCT USED FOR UNKNOWN INDICATION
     Route: 065

REACTIONS (5)
  - Inflammatory bowel disease [Recovered/Resolved]
  - Erythema [Recovered/Resolved]
  - Application site pain [Recovered/Resolved]
  - Skin irritation [Recovered/Resolved]
  - Nausea [Recovered/Resolved]
